FAERS Safety Report 8504825-2 (Version None)
Quarter: 2012Q3

REPORT INFORMATION
  Report Type: 
  Country: None (occurrence: None)
  Receive Date: 20120712
  Receipt Date: 20120703
  Transmission Date: 20120928
  Serious: Yes (Hospitalization)
  Sender: FDA-Public Use
  Company Number: US-BRISTOL-MYERS SQUIBB COMPANY-16667313

PATIENT
  Age: 62 Year
  Sex: Female

DRUGS (1)
  1. YERVOY [Suspect]
     Indication: METASTATIC MALIGNANT MELANOMA
     Dosage: INF:2
     Route: 042
     Dates: start: 20120515

REACTIONS (4)
  - RASH [None]
  - LYMPHADENOPATHY [None]
  - NEOPLASM MALIGNANT [None]
  - CELLULITIS [None]
